FAERS Safety Report 9562607 (Version 2)
Quarter: 2013Q3

REPORT INFORMATION
  Report Type: Report from Study
  Country: US (occurrence: US)
  Receive Date: 20130927
  Receipt Date: 20130927
  Transmission Date: 20140515
  Serious: Yes (Other)
  Sender: FDA-Public Use
  Company Number: US-ABBVIE-12P-163-0893075-00

PATIENT
  Age: 32 Year
  Sex: Female
  Weight: 55.84 kg

DRUGS (7)
  1. HUMIRA 40 MG/0.8 ML PEN [Suspect]
     Indication: CROHN^S DISEASE
     Route: 058
     Dates: start: 201107, end: 201202
  2. SULFASALAZINE [Concomitant]
     Indication: CROHN^S DISEASE
  3. STRATTERA [Concomitant]
     Indication: ATTENTION DEFICIT/HYPERACTIVITY DISORDER
  4. NEXIUM [Concomitant]
     Indication: GASTROOESOPHAGEAL REFLUX DISEASE
     Dosage: USUALLY ONLY TAKES ONCE PER DAY
  5. NEXIUM [Concomitant]
     Indication: GASTROOESOPHAGEAL REFLUX DISEASE
  6. IRON INFUSION [Concomitant]
     Indication: TRANSFERRIN SATURATION DECREASED
  7. VITAMIN D [Concomitant]
     Indication: VITAMIN D DECREASED

REACTIONS (6)
  - Fibrocystic breast disease [Recovered/Resolved]
  - Impaired healing [Not Recovered/Not Resolved]
  - Incisional drainage [Recovered/Resolved]
  - Impaired healing [Recovered/Resolved]
  - Ankylosing spondylitis [Unknown]
  - Blood iron decreased [Unknown]
